FAERS Safety Report 5525610-X (Version None)
Quarter: 2007Q4

REPORT INFORMATION
  Report Type: 
  Country: None (occurrence: None)
  Receive Date: 20071126
  Receipt Date: 20071115
  Transmission Date: 20080405
  Serious: Yes (Hospitalization, Other)
  Sender: FDA-Public Use
  Company Number: JP-ASTRAZENECA-2007AP06634

PATIENT
  Age: 70 Year

DRUGS (5)
  1. MEROPENEM [Suspect]
     Indication: PNEUMONIA
     Route: 042
     Dates: start: 20070612, end: 20070619
  2. CRAVIT [Concomitant]
     Indication: PNEUMONIA
     Route: 048
     Dates: start: 20070613, end: 20070621
  3. GASTER [Concomitant]
     Indication: GASTRITIS
     Route: 048
     Dates: start: 20070613, end: 20070621
  4. MUCOSTA [Concomitant]
     Indication: GASTRITIS
     Route: 048
     Dates: start: 20070613, end: 20070621
  5. MUCOSOLVAN [Concomitant]
     Indication: PNEUMONIA
     Route: 048
     Dates: start: 20070613, end: 20070621

REACTIONS (1)
  - INTERSTITIAL LUNG DISEASE [None]
